FAERS Safety Report 9119442 (Version 1)
Quarter: 2013Q1

REPORT INFORMATION
  Report Type: Spontaneous
  Country: FR (occurrence: FR)
  Receive Date: 20130226
  Receipt Date: 20130226
  Transmission Date: 20140127
  Serious: Yes (Hospitalization, Other)
  Sender: FDA-Public Use
  Company Number: FR-ELI_LILLY_AND_COMPANY-FR201302004892

PATIENT
  Age: 72 Year
  Sex: Male

DRUGS (5)
  1. CYMBALTA [Suspect]
     Dosage: UNK, UNKNOWN
  2. XATRAL [Concomitant]
  3. COUMADINE [Concomitant]
  4. NOVONORM [Concomitant]
  5. INEXIUM [Concomitant]

REACTIONS (4)
  - Cholestasis [Unknown]
  - Staphylococcal sepsis [Unknown]
  - Cholestatic liver injury [Unknown]
  - Arthritis bacterial [Unknown]
